FAERS Safety Report 17618692 (Version 5)
Quarter: 2020Q2

REPORT INFORMATION
  Report Type: Spontaneous
  Country: US (occurrence: US)
  Receive Date: 20200403
  Receipt Date: 20200504
  Transmission Date: 20200713
  Serious: No
  Sender: FDA-Public Use
  Company Number: US-ACTELION-A-NJ2020-203900

PATIENT
  Age: 39 Year
  Sex: Female
  Weight: 89.34 kg

DRUGS (5)
  1. VELETRI [Suspect]
     Active Substance: EPOPROSTENOL
     Dosage: 15 NG/KG, PER MIN
     Route: 042
  2. VELETRI [Suspect]
     Active Substance: EPOPROSTENOL
     Dosage: 20 NG/KG, PER MIN
     Route: 042
  3. OPSUMIT [Suspect]
     Active Substance: MACITENTAN
     Indication: PULMONARY ARTERIAL HYPERTENSION
     Dosage: 10 MG, QD
     Route: 048
     Dates: start: 20200306
  4. SILDENAFIL CITRATE. [Concomitant]
     Active Substance: SILDENAFIL CITRATE
  5. VELETRI [Suspect]
     Active Substance: EPOPROSTENOL
     Indication: PULMONARY ARTERIAL HYPERTENSION
     Dosage: 21 NG/KG, PER MIN
     Route: 042

REACTIONS (13)
  - Dyspnoea [Recovering/Resolving]
  - Catheter site erythema [Recovering/Resolving]
  - Rash pruritic [Recovering/Resolving]
  - Catheter site erosion [Recovering/Resolving]
  - Device occlusion [Unknown]
  - Diarrhoea [Unknown]
  - Catheter site irritation [Recovering/Resolving]
  - Device alarm issue [Unknown]
  - Pain in jaw [Unknown]
  - Catheter site rash [Recovering/Resolving]
  - Product dose omission [Unknown]
  - Device breakage [Unknown]
  - Catheter management [Unknown]

NARRATIVE: CASE EVENT DATE: 20200412
